FAERS Safety Report 19021148 (Version 1)
Quarter: 2021Q1

REPORT INFORMATION
  Report Type: Report from Study
  Country: FR (occurrence: FR)
  Receive Date: 20210317
  Receipt Date: 20210317
  Transmission Date: 20210420
  Serious: Yes (Hospitalization)
  Sender: FDA-Public Use
  Company Number: FR-TAKEDA-FR201920982

PATIENT

DRUGS (6)
  1. VITAMIN B12 + FOLIC ACID [Concomitant]
     Active Substance: CYANOCOBALAMIN\FOLIC ACID
     Indication: SUPPLEMENTATION THERAPY
  2. VITAMIN D3 [Concomitant]
     Active Substance: CHOLECALCIFEROL
     Indication: SUPPLEMENTATION THERAPY
  3. TEDUGLUTIDE [Suspect]
     Active Substance: TEDUGLUTIDE
     Indication: SHORT-BOWEL SYNDROME
     Dosage: 2.35 MILLIGRAM, 0.05 MG/KG, 7 DOSES PER WEEK
     Route: 065
     Dates: start: 20160111, end: 20160720
  4. TEDUGLUTIDE [Suspect]
     Active Substance: TEDUGLUTIDE
     Indication: SHORT-BOWEL SYNDROME
     Dosage: 2.35 MILLIGRAM, 0.05 MG/KG, 7 DOSES PER WEEK
     Route: 065
     Dates: start: 20160111, end: 20160720
  5. TEDUGLUTIDE [Suspect]
     Active Substance: TEDUGLUTIDE
     Indication: SHORT-BOWEL SYNDROME
     Dosage: 2.35 MILLIGRAM, 0.05 MG/KG, 7 DOSES PER WEEK
     Route: 065
     Dates: start: 20160111, end: 20160720
  6. TEDUGLUTIDE [Suspect]
     Active Substance: TEDUGLUTIDE
     Indication: SHORT-BOWEL SYNDROME
     Dosage: 2.35 MILLIGRAM, 0.05 MG/KG, 7 DOSES PER WEEK
     Route: 065
     Dates: start: 20160111, end: 20160720

REACTIONS (1)
  - Anaemia [Not Recovered/Not Resolved]

NARRATIVE: CASE EVENT DATE: 20190211
